FAERS Safety Report 7120378-8 (Version None)
Quarter: 2010Q4

REPORT INFORMATION
  Report Type: 
  Country: None (occurrence: None)
  Receive Date: 20101124
  Receipt Date: 20101116
  Transmission Date: 20110411
  Serious: Yes (Hospitalization, Other)
  Sender: FDA-Public Use
  Company Number: US-BIOGENIDEC-2010BI040287

PATIENT
  Age: 48 Year
  Sex: Female
  Weight: 77 kg

DRUGS (3)
  1. AVONEX [Suspect]
     Indication: MULTIPLE SCLEROSIS
     Route: 030
     Dates: end: 20020101
  2. AVONEX [Suspect]
     Route: 030
     Dates: start: 20020101, end: 20040101
  3. AVONEX [Suspect]
     Route: 030
     Dates: start: 20050101

REACTIONS (11)
  - BLOOD PRESSURE SYSTOLIC DECREASED [None]
  - COUGH [None]
  - FLUID RETENTION [None]
  - KIDNEY INFECTION [None]
  - MULTIPLE SCLEROSIS RELAPSE [None]
  - OESOPHAGEAL FISTULA [None]
  - PNEUMONIA BACTERIAL [None]
  - RENAL FAILURE [None]
  - SYNCOPE [None]
  - TRIGEMINAL NEURALGIA [None]
  - UPPER RESPIRATORY TRACT INFECTION [None]
